FAERS Safety Report 7232395-8 (Version None)
Quarter: 2011Q1

REPORT INFORMATION
  Report Type: 
  Country: None (occurrence: None)
  Receive Date: 20110105
  Receipt Date: 20101228
  Transmission Date: 20110831
  Serious: Yes (Hospitalization)
  Sender: FDA-Public Use
  Company Number: WAES 1012USA03866

PATIENT
  Age: 70 Year
  Sex: Female

DRUGS (3)
  1. TRACLEER [Suspect]
     Indication: PULMONARY ARTERIAL HYPERTENSION
     Dosage: PO
     Route: 048
     Dates: start: 20070214
  2. WARFARIN [Concomitant]
  3. SINGULAIR [Suspect]
     Dosage: PO
     Route: 048

REACTIONS (1)
  - DRUG HYPERSENSITIVITY [None]
